FAERS Safety Report 5626737-4 (Version None)
Quarter: 2008Q1

REPORT INFORMATION
  Report Type: 
  Country: None (occurrence: None)
  Receive Date: 20080212
  Receipt Date: 20080130
  Transmission Date: 20080703
  Serious: Yes (Hospitalization)
  Sender: FDA-Public Use
  Company Number: 236065K06USA

PATIENT
  Age: 36 Year
  Sex: Male
  Weight: 79.3795 kg

DRUGS (1)
  1. REBIF [Suspect]
     Indication: MULTIPLE SCLEROSIS
     Dosage: 44 MCG, 3 IN 1 WEEKS, SUBCUTANEOUS
     Route: 058
     Dates: start: 20060117, end: 20071219

REACTIONS (4)
  - INJECTION SITE ABSCESS [None]
  - POSTOPERATIVE WOUND COMPLICATION [None]
  - THERMAL BURN [None]
  - WRONG TECHNIQUE IN DRUG USAGE PROCESS [None]
